FAERS Safety Report 13224836 (Version 2)
Quarter: 2017Q2

REPORT INFORMATION
  Report Type: Spontaneous
  Country: US (occurrence: US)
  Receive Date: 20170213
  Receipt Date: 20170404
  Transmission Date: 20170830
  Serious: No
  Sender: FDA-Public Use
  Company Number: US-JNJFOC-20170209466

PATIENT
  Age: 46 Year
  Sex: Male
  Weight: 102.06 kg

DRUGS (1)
  1. LEVAQUIN [Suspect]
     Active Substance: LEVOFLOXACIN
     Indication: SINUSITIS
     Route: 048
     Dates: start: 20170121, end: 20170130

REACTIONS (1)
  - Opiates positive [Unknown]

NARRATIVE: CASE EVENT DATE: 20170209
